FAERS Safety Report 8433609-9 (Version None)
Quarter: 2012Q2

REPORT INFORMATION
  Report Type: 
  Country: None (occurrence: None)
  Receive Date: 20120613
  Receipt Date: 20120604
  Transmission Date: 20120825
  Serious: Yes (Hospitalization, Other)
  Sender: FDA-Public Use
  Company Number: FR-ASTRAZENECA-2012SE36427

PATIENT
  Age: 750 Month
  Sex: Male

DRUGS (2)
  1. CRESTOR [Suspect]
     Indication: DYSLIPIDAEMIA
     Route: 048
     Dates: end: 20120401
  2. VALSARTAN  AND HYDROCHLOROTHIAZIDE [Concomitant]
     Indication: HYPERTENSION
     Dosage: 160/25 MG DAILY
     Route: 048

REACTIONS (5)
  - HAEMOCHROMATOSIS [None]
  - MUSCLE SPASMS [None]
  - HEPATIC STEATOSIS [None]
  - RHABDOMYOLYSIS [None]
  - CHEST PAIN [None]
